FAERS Safety Report 7296856-8 (Version None)
Quarter: 2011Q1

REPORT INFORMATION
  Report Type: 
  Country: None (occurrence: None)
  Receive Date: 20110216
  Receipt Date: 20110210
  Transmission Date: 20110831
  Serious: Yes (Other)
  Sender: FDA-Public Use
  Company Number: CA-JNJCH-2011003770

PATIENT
  Sex: Female
  Weight: 61.7 kg

DRUGS (1)
  1. LISTERINE WHITENING PLUS RESTORING FLUORIDE RINSE CLEAN MINT [Suspect]
     Indication: DENTAL CARE
     Dosage: TEXT:MOUTHFUL THREE TIMES
     Route: 048

REACTIONS (2)
  - LIP PAIN [None]
  - PRECANCEROUS SKIN LESION [None]
